FAERS Safety Report 9845222 (Version 1)
Quarter: 2014Q1

REPORT INFORMATION
  Report Type: Spontaneous
  Country: GB (occurrence: None)
  Receive Date: 20140122
  Receipt Date: 20140122
  Transmission Date: 20141002
  Serious: Yes (Life-Threatening, Hospitalization)
  Sender: FDA-Public Use
  Company Number: PIC201401-000027

PATIENT
  Age: 75 Year
  Sex: Female

DRUGS (2)
  1. WARFARIN [Suspect]
  2. HEPARIN [Suspect]

REACTIONS (7)
  - Diarrhoea [None]
  - Rectal haemorrhage [None]
  - Lower gastrointestinal haemorrhage [None]
  - Haemodynamic instability [None]
  - Rectal ulcer [None]
  - Decubitus ulcer [None]
  - Medical device complication [None]
